FAERS Safety Report 10834244 (Version 3)
Quarter: 2015Q1

REPORT INFORMATION
  Report Type: Spontaneous
  Country: US (occurrence: US)
  Receive Date: 20150219
  Receipt Date: 20150318
  Transmission Date: 20150721
  Serious: Yes (Hospitalization)
  Sender: FDA-Public Use
  Company Number: US-UNITED THERAPEUTICS-UNT-2015-001012

PATIENT
  Age: 50 Year
  Sex: Male
  Weight: 77.9 kg

DRUGS (5)
  1. ADEMPAS [Concomitant]
     Active Substance: RIOCIGUAT
     Indication: PRODUCT USED FOR UNKNOWN INDICATION
  2. REMODULIN [Suspect]
     Active Substance: TREPROSTINIL
     Indication: PULMONARY ARTERIAL HYPERTENSION
     Dosage: 0.018 ?G/KG, CONTINUING
     Route: 058
     Dates: start: 20150129
  3. REMODULIN [Suspect]
     Active Substance: TREPROSTINIL
     Dosage: 0.0245 ?G/KG, CONTINUING
     Route: 058
     Dates: start: 20150211
  4. REMODULIN [Suspect]
     Active Substance: TREPROSTINIL
     Dosage: 0.018 ?G/KG, CONTINUING
     Route: 058
     Dates: start: 20150212
  5. TYVASO [Suspect]
     Active Substance: TREPROSTINIL
     Indication: PULMONARY ARTERIAL HYPERTENSION
     Dosage: 18 TO 54 MICROGRAMS, QID
     Dates: start: 20141027, end: 20150211

REACTIONS (7)
  - Asthenia [Unknown]
  - Infusion site pain [Unknown]
  - Pulmonary arterial hypertension [Unknown]
  - Somnolence [Unknown]
  - Sinusitis [Unknown]
  - Drug ineffective [Unknown]
  - Dizziness [Unknown]

NARRATIVE: CASE EVENT DATE: 201501
